FAERS Safety Report 6391664-4 (Version None)
Quarter: 2009Q4

REPORT INFORMATION
  Report Type: 
  Country: None (occurrence: None)
  Receive Date: 20091007
  Receipt Date: 20090925
  Transmission Date: 20100525
  Serious: Yes (Disabling, Other)
  Sender: FDA-Public Use
  Company Number: US-PFIZER INC-2009193797

PATIENT
  Sex: Female

DRUGS (8)
  1. PROVERA [Suspect]
     Indication: HORMONE REPLACEMENT THERAPY
     Dosage: 2.5 MG, UNK
     Route: 048
     Dates: start: 19920101, end: 19980812
  2. PREMARIN [Suspect]
     Indication: HORMONE REPLACEMENT THERAPY
     Dosage: 1.25 MG, UNK
     Dates: start: 19961209, end: 19980812
  3. PREMARIN [Suspect]
     Dosage: 0.625 MG, UNK
     Dates: start: 19920101, end: 19980507
  4. ESTRONE [Suspect]
     Indication: HORMONE REPLACEMENT THERAPY
     Dosage: 5 MG, UNK
     Route: 051
     Dates: start: 19961118
  5. DELESTROGEN [Suspect]
     Indication: HORMONE REPLACEMENT THERAPY
     Dosage: 10 MG, UNK
     Route: 051
     Dates: start: 19961118
  6. SYNTHROID [Concomitant]
     Indication: HYPOTHYROIDISM
     Dosage: 1 MG, 1X/DAY
     Dates: start: 19930625
  7. SERZONE [Concomitant]
     Indication: DEPRESSION
     Dosage: UNK
     Dates: start: 19961118, end: 20000101
  8. PRILOSEC [Concomitant]
     Dosage: UNK
     Dates: start: 19971013, end: 19990801

REACTIONS (8)
  - ALOPECIA [None]
  - BREAST CANCER FEMALE [None]
  - FATIGUE [None]
  - HYPERTENSION [None]
  - IMPAIRED WORK ABILITY [None]
  - METASTASES TO LYMPH NODES [None]
  - NAUSEA [None]
  - OEDEMA PERIPHERAL [None]
